FAERS Safety Report 8958920 (Version 1)
Quarter: 2012Q4

REPORT INFORMATION
  Report Type: 
  Country: US (occurrence: US)
  Receive Date: 20121211
  Receipt Date: 20121211
  Transmission Date: 20130627
  Serious: Yes (Hospitalization)
  Sender: FDA-Public Use
  Company Number: US-VERTEX PHARMACEUTICAL INC.-2012-022194

PATIENT
  Age: 58 Year
  Sex: Female
  Weight: 86 kg

DRUGS (6)
  1. VX-950 (TELAPREVIR) [Suspect]
     Indication: HEPATITIS C
     Dosage: 750 mg, tid
     Route: 048
     Dates: start: 20120916
  2. PEGINTRON                          /01543001/ [Suspect]
     Indication: HEPATITIS C
     Dosage: 150 UNK, UNK
     Route: 058
     Dates: start: 20120916
  3. RIBAPAK [Suspect]
     Indication: HEPATITIS C
     Dosage: 600 mg, bid
     Route: 048
     Dates: start: 20120916
  4. JANUVIA [Concomitant]
     Dosage: UNK, qd
  5. LANTUS [Concomitant]
     Dosage: UNK, qd
  6. METOPROLOL [Concomitant]
     Dosage: UNK, qd

REACTIONS (3)
  - Haematochezia [Unknown]
  - Vomiting [Unknown]
  - Nausea [Unknown]
